FAERS Safety Report 12651128 (Version 1)
Quarter: 2016Q3

REPORT INFORMATION
  Report Type: Spontaneous
  Country: US (occurrence: US)
  Receive Date: 20160815
  Receipt Date: 20160815
  Transmission Date: 20161109
  Serious: No
  Sender: FDA-Public Use
  Company Number: US-JAZZ-2016-US-005010

PATIENT
  Sex: Female

DRUGS (43)
  1. PROCARDIA XL [Concomitant]
     Active Substance: NIFEDIPINE
  2. BROVANA [Concomitant]
     Active Substance: ARFORMOTEROL TARTRATE
  3. LIDODERM [Concomitant]
     Active Substance: LIDOCAINE
  4. OXYCONTIN [Concomitant]
     Active Substance: OXYCODONE HYDROCHLORIDE
  5. XYREM [Suspect]
     Active Substance: SODIUM OXYBATE
     Indication: NARCOLEPSY
     Dosage: 2.25 G, BID
     Route: 048
     Dates: start: 200305, end: 2004
  6. LEVSIN [Concomitant]
     Active Substance: HYOSCYAMINE SULFATE
  7. MAXAIR [Concomitant]
     Active Substance: PIRBUTEROL ACETATE
  8. CARISOPRODOL. [Concomitant]
     Active Substance: CARISOPRODOL
  9. ESTRADIOL CYPIONATE [Concomitant]
     Active Substance: ESTRADIOL CYPIONATE
  10. MELOXICAM. [Concomitant]
     Active Substance: MELOXICAM
  11. OMEPRAZOLE DR [Concomitant]
     Active Substance: OMEPRAZOLE
  12. XYREM [Suspect]
     Active Substance: SODIUM OXYBATE
     Indication: CATAPLEXY
     Dosage: 4.5 G, BID
     Route: 048
     Dates: start: 200601, end: 2011
  13. CROMOLYN SODIUM. [Concomitant]
     Active Substance: CROMOLYN SODIUM
  14. AMLODIPINE BESYLATE. [Concomitant]
     Active Substance: AMLODIPINE BESYLATE
  15. CLONIDINE HCL [Concomitant]
     Active Substance: CLONIDINE HYDROCHLORIDE
  16. TRAMADOL HCL ER [Concomitant]
  17. NEURONTIN [Concomitant]
     Active Substance: GABAPENTIN
  18. QVAR [Concomitant]
     Active Substance: BECLOMETHASONE DIPROPIONATE
  19. ULTRAM [Concomitant]
     Active Substance: TRAMADOL HYDROCHLORIDE
  20. XYREM [Suspect]
     Active Substance: SODIUM OXYBATE
     Dosage: 4.5 G, BID
     Route: 048
     Dates: start: 201507
  21. IMITREX [Concomitant]
     Active Substance: SUMATRIPTAN SUCCINATE
  22. NASOCORT [Concomitant]
     Active Substance: BUDESONIDE
  23. ATROVENT HFA [Concomitant]
     Active Substance: IPRATROPIUM BROMIDE
  24. PREDNISONE. [Concomitant]
     Active Substance: PREDNISONE
  25. SPIRONOLACTONE. [Concomitant]
     Active Substance: SPIRONOLACTONE
  26. ZYRTEC [Concomitant]
     Active Substance: CETIRIZINE HYDROCHLORIDE
  27. URIBEL [Concomitant]
     Active Substance: HYOSCYAMINE SULFATE\METHENAMINE\METHYLENE BLUE\PHENYL SALICYLATE\SODIUM PHOSPHATE, MONOBASIC, MONOHYDRATE
  28. BACLOFEN. [Concomitant]
     Active Substance: BACLOFEN
  29. HYDROCODONE BITARTRATE AND ACETAMINOPHEN [Concomitant]
     Active Substance: ACETAMINOPHEN\HYDROCODONE BITARTRATE
  30. LISINOPRIL. [Concomitant]
     Active Substance: LISINOPRIL
  31. OXYCODONE HYDROCHLORIDE. [Concomitant]
     Active Substance: OXYCODONE HYDROCHLORIDE
  32. PROVIGIL [Concomitant]
     Active Substance: MODAFINIL
  33. RESTASIS [Concomitant]
     Active Substance: CYCLOSPORINE
  34. SINGULAIR [Concomitant]
     Active Substance: MONTELUKAST SODIUM
  35. BENTYL [Concomitant]
     Active Substance: DICYCLOMINE HYDROCHLORIDE
  36. LASIX [Concomitant]
     Active Substance: FUROSEMIDE
  37. LORTAB [Concomitant]
     Active Substance: ACETAMINOPHEN\HYDROCODONE BITARTRATE
  38. SOMA [Concomitant]
     Active Substance: CARISOPRODOL
  39. LEVOTHYROXINE SODIUM. [Concomitant]
     Active Substance: LEVOTHYROXINE SODIUM
  40. XYREM [Suspect]
     Active Substance: SODIUM OXYBATE
     Dosage: 4.5 G, BID
     Route: 048
     Dates: start: 201203, end: 2012
  41. XYREM [Suspect]
     Active Substance: SODIUM OXYBATE
     Dosage: 4.5 G, BID
     Route: 048
     Dates: start: 201303, end: 2015
  42. BOTOX [Concomitant]
     Active Substance: ONABOTULINUMTOXINA
  43. TOVIAZ [Concomitant]
     Active Substance: FESOTERODINE FUMARATE

REACTIONS (1)
  - Asthenia [Unknown]
